FAERS Safety Report 4603559-4 (Version None)
Quarter: 2005Q1

REPORT INFORMATION
  Report Type: 
  Country: None (occurrence: None)
  Receive Date: 20050310
  Receipt Date: 20050301
  Transmission Date: 20050727
  Serious: Yes (Life-Threatening, Other)
  Sender: FDA-Public Use
  Company Number: DK-JNJFOC-20040502352

PATIENT
  Sex: Female
  Weight: 66 kg

DRUGS (13)
  1. BLINDED; ABCIXIMA [Suspect]
     Route: 042
  2. BLINDED; ABCIXIMA [Suspect]
     Indication: ACUTE MYOCARDIAL INFARCTION
     Route: 042
  3. RETEPLASE [Suspect]
     Indication: ACUTE MYOCARDIAL INFARCTION
     Route: 042
  4. PLACEBO [Suspect]
     Indication: ACUTE MYOCARDIAL INFARCTION
     Route: 042
  5. MAGNYL [Concomitant]
  6. MAGNYL [Concomitant]
     Indication: MYOCARDIAL INFARCTION
  7. PLAVIX [Concomitant]
     Indication: MYOCARDIAL INFARCTION
  8. PREDNISON [Concomitant]
  9. LANSOPRAZOLE [Concomitant]
     Indication: GASTRITIS
  10. SIMVASTATIN [Concomitant]
  11. DIMITONE [Concomitant]
  12. FUROSEMIDE [Concomitant]
  13. KALEORID [Concomitant]

REACTIONS (3)
  - GASTROINTESTINAL HAEMORRHAGE [None]
  - MYOCARDIAL RUPTURE [None]
  - PERICARDIAL HAEMORRHAGE [None]
